FAERS Safety Report 6401163-9 (Version None)
Quarter: 2009Q4

REPORT INFORMATION
  Report Type: 
  Country: None (occurrence: None)
  Receive Date: 20091015
  Receipt Date: 20091006
  Transmission Date: 20100525
  Serious: Yes (Other)
  Sender: FDA-Public Use
  Company Number: JP-JNJFOC-20091003898

PATIENT
  Age: 31 Year
  Sex: Male

DRUGS (3)
  1. RISPERDAL [Suspect]
     Route: 048
  2. RISPERDAL [Suspect]
     Route: 048
  3. RISPERDAL [Suspect]
     Indication: AUTISM
     Route: 048

REACTIONS (5)
  - BLOOD GLUCOSE INCREASED [None]
  - HYPOKINESIA [None]
  - ILEUS PARALYTIC [None]
  - RHABDOMYOLYSIS [None]
  - SEDATION [None]
